FAERS Safety Report 20580485 (Version 1)
Quarter: 2022Q1

REPORT INFORMATION
  Report Type: Spontaneous
  Country: US (occurrence: US)
  Receive Date: 20220311
  Receipt Date: 20220311
  Transmission Date: 20220423
  Serious: No
  Sender: FDA-Public Use
  Company Number: US-CHIESI-2021CHF06601

PATIENT
  Age: 80 Year
  Sex: Male
  Weight: 96 kg

DRUGS (4)
  1. FERRIPROX [Suspect]
     Active Substance: DEFERIPRONE
     Indication: Haemochromatosis
     Dosage: 1000 MILLIGRAM, BID
     Route: 048
     Dates: start: 20211216
  2. FERRIPROX [Suspect]
     Active Substance: DEFERIPRONE
     Indication: Transfusion
     Dosage: 2000 MILLIGRAM, BID
     Route: 048
     Dates: start: 202112, end: 20211226
  3. FERRIPROX [Suspect]
     Active Substance: DEFERIPRONE
     Indication: Myelodysplastic syndrome
  4. FERRIPROX [Suspect]
     Active Substance: DEFERIPRONE
     Indication: Off label use

REACTIONS (3)
  - Faeces discoloured [Unknown]
  - Constipation [Recovering/Resolving]
  - Off label use [Recovered/Resolved]

NARRATIVE: CASE EVENT DATE: 20211216
